FAERS Safety Report 11540246 (Version 1)
Quarter: 2015Q3

REPORT INFORMATION
  Report Type: Spontaneous
  Country: JP (occurrence: JP)
  Receive Date: 20150923
  Receipt Date: 20150923
  Transmission Date: 20151125
  Serious: Yes (Other)
  Sender: FDA-Public Use
  Company Number: JP-ROCHE-1635518

PATIENT
  Sex: Female

DRUGS (6)
  1. DOCETAXEL. [Concomitant]
     Active Substance: DOCETAXEL
     Dosage: DOSAGE IS UNCERTAIN.
     Route: 041
  2. PERJETA [Suspect]
     Active Substance: PERTUZUMAB
     Indication: PRODUCT USED FOR UNKNOWN INDICATION
     Dosage: DOSAGE IS UNCERTAIN. 420MG/14ML
     Route: 041
  3. PERJETA [Suspect]
     Active Substance: PERTUZUMAB
     Dosage: DOSAGE IS UNCERTAIN.
     Route: 041
  4. DOCETAXEL. [Concomitant]
     Active Substance: DOCETAXEL
     Dosage: DOSAGE IS UNCERTAIN.
     Route: 041
  5. HERCEPTIN [Suspect]
     Active Substance: TRASTUZUMAB
     Indication: PRODUCT USED FOR UNKNOWN INDICATION
     Dosage: DOSAGE IS UNCERTAIN.
     Route: 041
  6. HERCEPTIN [Suspect]
     Active Substance: TRASTUZUMAB
     Dosage: DOSAGE IS UNCERTAIN.
     Route: 041

REACTIONS (1)
  - Organising pneumonia [Unknown]

NARRATIVE: CASE EVENT DATE: 201506
